FAERS Safety Report 7774391-8 (Version None)
Quarter: 2011Q3

REPORT INFORMATION
  Report Type: 
  Country: None (occurrence: None)
  Receive Date: 20110923
  Receipt Date: 20110915
  Transmission Date: 20111222
  Serious: No
  Sender: FDA-Public Use
  Company Number: AR-AMGEN-ARGSP2011045733

PATIENT
  Age: 34 Year
  Sex: Male
  Weight: 105 kg

DRUGS (5)
  1. ENBREL [Suspect]
     Indication: PSORIATIC ARTHROPATHY
     Dosage: 50 MG, WEEKLY
     Route: 058
     Dates: start: 20110807, end: 20110828
  2. METHOTREXATE [Concomitant]
     Dosage: UNK
  3. FILARTROS [Concomitant]
     Dosage: UNK
     Dates: end: 20110801
  4. PREDNISONE [Concomitant]
     Dosage: UNK
  5. NAPROXEN [Concomitant]
     Dosage: UNK

REACTIONS (3)
  - APPLICATION SITE REACTION [None]
  - APPLICATION SITE HYPERSENSITIVITY [None]
  - APPLICATION SITE INFLAMMATION [None]
